FAERS Safety Report 18597700 (Version 3)
Quarter: 2021Q1

REPORT INFORMATION
  Report Type: Spontaneous
  Country: JP (occurrence: JP)
  Receive Date: 20201210
  Receipt Date: 20210228
  Transmission Date: 20210419
  Serious: Yes (Other)
  Sender: FDA-Public Use
  Company Number: JP-JNJFOC-20201010728

PATIENT
  Age: 64 Year
  Sex: Male

DRUGS (14)
  1. PRAVASTATIN SODIUM. [Concomitant]
     Active Substance: PRAVASTATIN SODIUM
     Indication: HYPERTENSION
     Dosage: AFTER DINNER
     Route: 048
     Dates: start: 2019
  2. TRAMCET [Suspect]
     Active Substance: ACETAMINOPHEN\TRAMADOL
     Dosage: AFTER DINNER
     Route: 048
     Dates: start: 201405, end: 2020
  3. TRAMCET [Suspect]
     Active Substance: ACETAMINOPHEN\TRAMADOL
     Dosage: 1 TABLET IN THE MORNING AND 2 TABLETS IN THE EVENING
     Route: 048
     Dates: start: 2020
  4. AMLODIPINE [Concomitant]
     Active Substance: AMLODIPINE BESYLATE
     Indication: HYPERTENSION
     Dosage: DOSE UNKNOWN
     Route: 048
     Dates: start: 2012
  5. PRIMPERAN [Concomitant]
     Active Substance: METOCLOPRAMIDE HYDROCHLORIDE
     Indication: CONSTIPATION
     Dosage: IN THE EVENING
     Route: 048
     Dates: end: 202006
  6. TRAMCET [Suspect]
     Active Substance: ACETAMINOPHEN\TRAMADOL
     Indication: PAIN
     Dosage: IN THE MORNING AND EVENING
     Route: 048
     Dates: start: 20130405, end: 20130520
  7. TRAMCET [Suspect]
     Active Substance: ACETAMINOPHEN\TRAMADOL
     Dosage: 1 TABLETS + 2/3 TABLETS
     Route: 048
     Dates: start: 2020
  8. SENNA [Concomitant]
     Active Substance: SENNA LEAF\SENNOSIDES\SENNOSIDES A AND B
     Indication: CONSTIPATION
     Dosage: AT BEDTIME1 TIME PER 3 TO 4 DAY
     Route: 048
  9. TRAMCET [Suspect]
     Active Substance: ACETAMINOPHEN\TRAMADOL
     Dosage: IN THE MORNING AND EVENING
     Route: 048
     Dates: start: 202007
  10. TRAMCET [Suspect]
     Active Substance: ACETAMINOPHEN\TRAMADOL
     Dosage: IN THE EVENING
     Route: 048
     Dates: start: 2020
  11. TRAMCET [Suspect]
     Active Substance: ACETAMINOPHEN\TRAMADOL
     Dosage: 1/2 TABLET AFTER LUNCH1/2 TABLET AFTER DINNER2/3 TABLETS AT BEDTIME
     Route: 048
     Dates: start: 202011
  12. TRAMCET [Suspect]
     Active Substance: ACETAMINOPHEN\TRAMADOL
     Dosage: IN THE MORNING AND EVENING
     Route: 048
     Dates: start: 20130521
  13. AMLODIPINE [Concomitant]
     Active Substance: AMLODIPINE BESYLATE
     Indication: HYPERTENSION
     Dosage: AFTER BREAKFAST
     Route: 048
     Dates: start: 2019
  14. CRESTOR [Concomitant]
     Active Substance: ROSUVASTATIN CALCIUM
     Indication: HYPERTENSION
     Dosage: DOSE UNKNOWN
     Route: 048
     Dates: start: 2012

REACTIONS (13)
  - Dizziness [Unknown]
  - Myocardial infarction [Unknown]
  - Constipation [Unknown]
  - Muscular weakness [Unknown]
  - Conversion disorder [Unknown]
  - Nocturia [Unknown]
  - Asthenia [Unknown]
  - Treatment noncompliance [Unknown]
  - Dependence [Not Recovered/Not Resolved]
  - Withdrawal syndrome [Unknown]
  - Fatigue [Unknown]
  - Insomnia [Unknown]
  - Dizziness postural [Unknown]

NARRATIVE: CASE EVENT DATE: 201305
